FAERS Safety Report 13889591 (Version 2)
Quarter: 2017Q3

REPORT INFORMATION
  Report Type: Report from Study
  Country: None (occurrence: US)
  Receive Date: 20170822
  Receipt Date: 20170824
  Transmission Date: 20171127
  Serious: Yes (Hospitalization)
  Sender: FDA-Public Use
  Company Number: US-ABBVIE-17K-163-2076723-00

PATIENT
  Age: 52 Year
  Sex: Male

DRUGS (2)
  1. HUMIRA [Suspect]
     Active Substance: ADALIMUMAB
     Indication: PSORIASIS
     Route: 058
  2. HUMIRA [Suspect]
     Active Substance: ADALIMUMAB
     Indication: PSORIATIC ARTHROPATHY

REACTIONS (6)
  - Chest pain [Unknown]
  - Dyspnoea [Unknown]
  - Infection [Unknown]
  - Pneumonia [Unknown]
  - Body temperature abnormal [Unknown]
  - Chills [Unknown]

NARRATIVE: CASE EVENT DATE: 20170815
